FAERS Safety Report 20138462 (Version 1)
Quarter: 2021Q4

REPORT INFORMATION
  Report Type: Spontaneous
  Country: US (occurrence: None)
  Receive Date: 20211202
  Receipt Date: 20211202
  Transmission Date: 20220303
  Serious: Yes (Other)
  Sender: FDA-Public Use
  Company Number: 2021A850607

PATIENT
  Sex: Male

DRUGS (9)
  1. OLAPARIB [Suspect]
     Active Substance: OLAPARIB
     Indication: Prostate cancer metastatic
     Route: 048
     Dates: start: 202009, end: 20210429
  2. MITOXANTRONE [Concomitant]
     Active Substance: MITOXANTRONE HYDROCHLORIDE
     Route: 065
     Dates: start: 20211009, end: 20211028
  3. LUPRON [Concomitant]
     Active Substance: LEUPROLIDE ACETATE
     Route: 065
     Dates: start: 201602
  4. CASODEX [Concomitant]
     Active Substance: BICALUTAMIDE
     Route: 065
     Dates: start: 2018
  5. TAXOTERE [Concomitant]
     Active Substance: DOCETAXEL
     Route: 065
     Dates: start: 20190105, end: 201908
  6. TAXOTERE [Concomitant]
     Active Substance: DOCETAXEL
     Dosage: GOT SIX CYCLES
     Route: 065
     Dates: start: 20200505, end: 20200820
  7. XTENDI [Concomitant]
     Route: 065
     Dates: start: 201910, end: 202004
  8. JEVTANA [Concomitant]
     Active Substance: CABAZITAXEL
     Dosage: GOT SIX CYCLES
     Route: 065
     Dates: start: 20210505, end: 20210818
  9. ZYTIGA [Concomitant]
     Active Substance: ABIRATERONE ACETATE
     Route: 065
     Dates: start: 202110, end: 20211111

REACTIONS (1)
  - Malignant neoplasm progression [Unknown]
